FAERS Safety Report 25247688 (Version 1)
Quarter: 2025Q2

REPORT INFORMATION
  Report Type: Report from Study
  Country: GB (occurrence: GB)
  Receive Date: 20250428
  Receipt Date: 20250428
  Transmission Date: 20250716
  Serious: Yes (Hospitalization)
  Sender: AMGEN
  Company Number: GB-AMGEN-GBRSL2025017907

PATIENT
  Sex: Female

DRUGS (1)
  1. ADALIMUMAB [Suspect]
     Active Substance: ADALIMUMAB
     Indication: Psoriatic arthropathy
     Dosage: 40 MILLIGRAM, Q2WK
     Route: 065

REACTIONS (6)
  - Gastrointestinal infection [Unknown]
  - Intestinal perforation [Unknown]
  - Lower respiratory tract infection [Not Recovered/Not Resolved]
  - Influenza [Unknown]
  - Movement disorder [Unknown]
  - Malaise [Unknown]
